FAERS Safety Report 6555028-2 (Version None)
Quarter: 2010Q1

REPORT INFORMATION
  Report Type: 
  Country: None (occurrence: None)
  Receive Date: 20100128
  Receipt Date: 20100120
  Transmission Date: 20100710
  Serious: Yes (Hospitalization)
  Sender: FDA-Public Use
  Company Number: TN-BIOGENIDEC-2009BI029630

PATIENT
  Age: 35 Year
  Sex: Male

DRUGS (4)
  1. TYSABRI [Suspect]
     Indication: RELAPSING-REMITTING MULTIPLE SCLEROSIS
     Route: 042
     Dates: start: 20090804, end: 20090901
  2. TYSABRI [Suspect]
     Dates: start: 20091117
  3. DEPAKENE [Concomitant]
     Indication: CONVULSION PROPHYLAXIS
  4. ZOLOFT [Concomitant]
     Indication: ANTIDEPRESSANT THERAPY

REACTIONS (1)
  - MULTIPLE SCLEROSIS RELAPSE [None]
